FAERS Safety Report 19744172 (Version 1)
Quarter: 2021Q3

REPORT INFORMATION
  Report Type: Spontaneous
  Country: DE (occurrence: DE)
  Receive Date: 20210825
  Receipt Date: 20210825
  Transmission Date: 20211014
  Serious: Yes (Other)
  Sender: FDA-Public Use
  Company Number: NVSC2021DE188817

PATIENT
  Sex: Male
  Weight: 80 kg

DRUGS (2)
  1. SANDIMMUN NEORAL [Suspect]
     Active Substance: CYCLOSPORINE
     Dosage: 120 MG, BID
     Route: 065
  2. SANDIMMUN NEORAL [Suspect]
     Active Substance: CYCLOSPORINE
     Indication: PRODUCT USED FOR UNKNOWN INDICATION
     Dosage: 80 MG, BID
     Route: 065

REACTIONS (4)
  - Weight increased [Unknown]
  - Pelvic fracture [Not Recovered/Not Resolved]
  - Fall [Not Recovered/Not Resolved]
  - Drug level decreased [Unknown]

NARRATIVE: CASE EVENT DATE: 202011
